FAERS Safety Report 24466028 (Version 1)
Quarter: 2024Q4

REPORT INFORMATION
  Report Type: Spontaneous
  Country: US (occurrence: US)
  Receive Date: 20241018
  Receipt Date: 20241018
  Transmission Date: 20250115
  Serious: No
  Sender: ROCHE
  Company Number: US-ROCHE-3528935

PATIENT
  Sex: Male

DRUGS (2)
  1. XOLAIR [Suspect]
     Active Substance: OMALIZUMAB
     Indication: Product used for unknown indication
     Dosage: 1ST DOSE IN APRIL 2023, BEGIN MONTHLY INJECTIONS IN AUGUST 2023, INCREASED DOSAGE TO 300MG EVERY TWO
     Route: 065
     Dates: start: 202304
  2. XOLAIR [Suspect]
     Active Substance: OMALIZUMAB
     Route: 065
     Dates: start: 202311

REACTIONS (3)
  - Urticaria [Unknown]
  - COVID-19 [Unknown]
  - Headache [Unknown]
